FAERS Safety Report 6244330-X (Version None)
Quarter: 2009Q2

REPORT INFORMATION
  Report Type: 
  Country: None (occurrence: None)
  Receive Date: 20090625
  Receipt Date: 20090617
  Transmission Date: 20091009
  Serious: Yes (Hospitalization)
  Sender: FDA-Public Use
  Company Number: ES-ROCHE-638879

PATIENT
  Age: 60 Year
  Sex: Female

DRUGS (4)
  1. VALGANCICLOVIR HCL [Suspect]
     Indication: RENAL TRANSPLANT
     Dosage: PROVISIONALLY STOPPED.
     Route: 065
     Dates: start: 20081001, end: 20081101
  2. MYCOPHENOLATE MOFETIL [Interacting]
     Route: 065
     Dates: end: 20081101
  3. PREDNISONE [Concomitant]
  4. TACROLIMUS [Concomitant]
     Dosage: DOSE REPORTED: 3-0-4 MG

REACTIONS (3)
  - DRUG INTERACTION [None]
  - LEUKOPENIA [None]
  - NEUTROPENIA [None]
